FAERS Safety Report 9288066 (Version 1)
Quarter: 2013Q2

REPORT INFORMATION
  Report Type: Spontaneous
  Country: US (occurrence: None)
  Receive Date: 20130513
  Receipt Date: 20130513
  Transmission Date: 20140414
  Serious: Yes (Life-Threatening, Other)
  Sender: FDA-Public Use
  Company Number: None

PATIENT
  Age: 24 Year
  Sex: Male
  Weight: 83.92 kg

DRUGS (7)
  1. ALPRAZOLAM [Suspect]
     Indication: GENERALISED ANXIETY DISORDER
     Dosage: ONCE A DAY. B
     Route: 048
     Dates: start: 20130202, end: 20130212
  2. ALPRAZOLAM [Suspect]
     Indication: PANIC ATTACK
     Dosage: ONCE A DAY. B
     Route: 048
     Dates: start: 20130202, end: 20130212
  3. LEXAPRO 10 MG [Concomitant]
  4. DEXEDRINE 5 MG [Concomitant]
  5. CLONODINE .01MG [Concomitant]
  6. LISINOPRIL 10 MG [Concomitant]
  7. CLONOZAPAM 1 MG [Concomitant]

REACTIONS (6)
  - Anxiety [None]
  - Palpitations [None]
  - Hyperhidrosis [None]
  - Insomnia [None]
  - Product counterfeit [None]
  - Product quality issue [None]
